FAERS Safety Report 13081001 (Version 2)
Quarter: 2017Q1

REPORT INFORMATION
  Report Type: Spontaneous
  Country: BR (occurrence: BR)
  Receive Date: 20170103
  Receipt Date: 20170105
  Transmission Date: 20170428
  Serious: Yes (Other)
  Sender: FDA-Public Use
  Company Number: BR-SA-2016SA230266

PATIENT
  Age: 42 Year
  Sex: Female
  Weight: 68 kg

DRUGS (2)
  1. CLEXANE SAFETY LOCK [Suspect]
     Active Substance: ENOXAPARIN SODIUM
     Indication: PROPHYLAXIS OF ABORTION
     Dosage: ENOXAPARIN SODIUM- 40MG/2 SYRINGES.
     Route: 065
     Dates: start: 20161212
  2. FOLIC ACID. [Concomitant]
     Active Substance: FOLIC ACID
     Route: 065

REACTIONS (3)
  - Abortion spontaneous [Unknown]
  - Off label use [Unknown]
  - Exposure during pregnancy [Unknown]
